FAERS Safety Report 15895595 (Version 2)
Quarter: 2019Q1

REPORT INFORMATION
  Report Type: Spontaneous
  Country: US (occurrence: US)
  Receive Date: 20190131
  Receipt Date: 20190219
  Transmission Date: 20190417
  Serious: No
  Sender: FDA-Public Use
  Company Number: US-VERTEX PHARMACEUTICALS-2019-000832

PATIENT
  Sex: Male
  Weight: 65 kg

DRUGS (11)
  1. ALBUTEROL HFA [Concomitant]
     Active Substance: ALBUTEROL SULFATE
     Route: 055
  2. SYMDEKO [Suspect]
     Active Substance: IVACAFTOR\TEZACAFTOR
     Indication: CYSTIC FIBROSIS
     Dosage: 1 DOSAGE FORM, BID
     Route: 048
     Dates: start: 201806
  3. CAYSTON [Concomitant]
     Active Substance: AZTREONAM
     Route: 055
  4. TOBI [Concomitant]
     Active Substance: TOBRAMYCIN
     Dosage: 300/5 MG/ML, BID
     Route: 055
     Dates: start: 2018
  5. SINGULAIR [Concomitant]
     Active Substance: MONTELUKAST SODIUM
  6. HYPERSAL [Concomitant]
     Route: 055
  7. ZITHROMAX [Concomitant]
     Active Substance: AZITHROMYCIN DIHYDRATE
  8. CREON [Concomitant]
     Active Substance: PANCRELIPASE AMYLASE\PANCRELIPASE LIPASE\PANCRELIPASE PROTEASE
  9. PULMOZYME [Concomitant]
     Active Substance: DORNASE ALFA
     Route: 055
  10. PRILOSEC [Concomitant]
     Active Substance: OMEPRAZOLE MAGNESIUM
  11. VITAMIN D3 [Concomitant]
     Active Substance: CHOLECALCIFEROL

REACTIONS (1)
  - Ligament sprain [Unknown]
